FAERS Safety Report 26145125 (Version 3)
Quarter: 2025Q4

REPORT INFORMATION
  Report Type: Report from Study
  Country: US (occurrence: US)
  Receive Date: 20251211
  Receipt Date: 20251217
  Transmission Date: 20260117
  Serious: Yes (Other)
  Sender: ABBVIE
  Company Number: US-ABBVIE-6581966

PATIENT
  Age: 74 Year
  Sex: Female

DRUGS (1)
  1. ELAHERE [Suspect]
     Active Substance: MIRVETUXIMAB SORAVTANSINE-GYNX
     Indication: Fallopian tube cancer
     Dosage: DOSAGE: 5 MG/ML 5 MG/ML INJECTION
     Route: 042
     Dates: start: 20251201

REACTIONS (9)
  - Peritoneal carcinoma metastatic [Unknown]
  - Drug hypersensitivity [Unknown]
  - Off label use [Unknown]
  - Fatigue [Recovering/Resolving]
  - Constipation [Unknown]
  - Pain [Unknown]
  - Abdominal pain upper [Not Recovered/Not Resolved]
  - Diarrhoea [Unknown]
  - Loss of personal independence in daily activities [Unknown]

NARRATIVE: CASE EVENT DATE: 20251201
